FAERS Safety Report 11453201 (Version 1)
Quarter: 2015Q3

REPORT INFORMATION
  Report Type: Spontaneous
  Country: US (occurrence: US)
  Receive Date: 20150903
  Receipt Date: 20150903
  Transmission Date: 20151125
  Serious: No
  Sender: FDA-Public Use
  Company Number: US-ROCHE-1079812

PATIENT
  Sex: Female

DRUGS (4)
  1. RIBAVIRIN. [Suspect]
     Active Substance: RIBAVIRIN
     Dosage: THERAPY FOR 48 WEEKS.
     Route: 048
     Dates: start: 20120601
  2. RIBAVIRIN. [Suspect]
     Active Substance: RIBAVIRIN
     Indication: HEPATITIS C
     Dosage: THERAPY FOR 24 WEEKS 1 YEAR AGO.
     Route: 065
  3. PEGASYS [Suspect]
     Active Substance: PEGINTERFERON ALFA-2A
     Dosage: THERAPY FOR 48 WEEKS
     Route: 058
     Dates: start: 20120601
  4. PEGASYS [Suspect]
     Active Substance: PEGINTERFERON ALFA-2A
     Indication: CHRONIC HEPATITIS C
     Dosage: THERAPY FOR 24 WEEKS 1 YEAR AGO.
     Route: 065

REACTIONS (5)
  - Nausea [Unknown]
  - Red blood cell count abnormal [Unknown]
  - Mental disorder [Unknown]
  - Headache [Unknown]
  - Vertigo [Unknown]
